FAERS Safety Report 26123993 (Version 1)
Quarter: 2025Q4

REPORT INFORMATION
  Report Type: Spontaneous
  Country: EU (occurrence: EU)
  Receive Date: 20251205
  Receipt Date: 20251205
  Transmission Date: 20260117
  Serious: Yes (Other)
  Sender: CIPLA
  Company Number: EU-MINISAL02-1068407

PATIENT

DRUGS (7)
  1. RIVAROXABAN [Suspect]
     Active Substance: RIVAROXABAN
     Indication: Atrial fibrillation
     Dosage: 15 MILLIGRAM, QD (EVERY 24 HOURS, COATED TABLET)
     Route: 048
     Dates: start: 20241123, end: 202505
  2. BISOPROLOL FUMARATE [Concomitant]
     Active Substance: BISOPROLOL FUMARATE
     Indication: Product used for unknown indication
     Dosage: 2.5 MILLIGRAM, QD (EVERY 24 HOURS)
     Route: 048
  3. OLMESARTAN MEDOXOMIL [Concomitant]
     Active Substance: OLMESARTAN MEDOXOMIL
     Indication: Product used for unknown indication
     Dosage: 10 MILLIGRAM, QD (EVERY 24 HOURS)
     Route: 048
  4. LASIX [Concomitant]
     Active Substance: FUROSEMIDE
     Indication: Product used for unknown indication
     Dosage: 25 MILLIGRAM, QD (EVERY 24 HOURS)
     Route: 048
  5. TAFLUPROST [Concomitant]
     Active Substance: TAFLUPROST
     Indication: Product used for unknown indication
     Dosage: UNK
     Route: 031
  6. OMEPRAZOLE [Concomitant]
     Active Substance: OMEPRAZOLE
     Indication: Product used for unknown indication
     Dosage: 20 MILLIGRAM, QD (EVERY 24 HOURS)
     Route: 048
  7. FLUTICASONE PROPIONATE\SALMETEROL XINAFOATE [Concomitant]
     Active Substance: FLUTICASONE PROPIONATE\SALMETEROL XINAFOATE
     Indication: Product used for unknown indication
     Dosage: 550 MICROGRAM, QD (EVERY 24 HOURS, INHALATION)
     Route: 055

REACTIONS (2)
  - Renal failure [Recovered/Resolved]
  - Epistaxis [Recovered/Resolved]

NARRATIVE: CASE EVENT DATE: 20250501
